FAERS Safety Report 19469952 (Version 1)
Quarter: 2021Q2

REPORT INFORMATION
  Report Type: Report from Study
  Country: GB (occurrence: GB)
  Receive Date: 20210628
  Receipt Date: 20210628
  Transmission Date: 20210717
  Serious: Yes (Other)
  Sender: FDA-Public Use
  Company Number: GB-MYLANLABS-2021M1037248

PATIENT
  Sex: Female

DRUGS (1)
  1. BRABIO 40 MG/ML SOLUTION FOR INJECTION, PRE?FILLED?SYRINGE [Suspect]
     Active Substance: GLATIRAMER ACETATE
     Indication: MULTIPLE SCLEROSIS
     Dosage: 40 MILLIGRAM, 3XW
     Route: 058
     Dates: start: 2018

REACTIONS (4)
  - Muscle spasms [Unknown]
  - Pain [Unknown]
  - Gait inability [Unknown]
  - Multiple sclerosis relapse [Unknown]
